FAERS Safety Report 5517546-5 (Version None)
Quarter: 2007Q4

REPORT INFORMATION
  Report Type: 
  Country: None (occurrence: None)
  Receive Date: 20071114
  Receipt Date: 20071105
  Transmission Date: 20080405
  Serious: Yes (Hospitalization, Other)
  Sender: FDA-Public Use
  Company Number: US-PFIZER INC-2007036240

PATIENT
  Sex: Female
  Weight: 56.7 kg

DRUGS (8)
  1. CELEBREX [Suspect]
     Indication: ARTHRITIS
     Dates: start: 20010501, end: 20010701
  2. CELEBREX [Suspect]
     Indication: PAIN
  3. BEXTRA [Suspect]
     Indication: ARTHRITIS
     Dates: start: 20041001, end: 20041201
  4. BEXTRA [Suspect]
     Indication: PAIN
  5. VIOXX [Suspect]
     Dosage: TEXT:25 AND 50MG
  6. ACETYLSALICYLIC ACID SRT [Concomitant]
  7. MOTRIN [Concomitant]
     Indication: ARTHRITIS
     Dates: start: 20000101
  8. ECHINACEA [Concomitant]
     Dates: start: 19980101, end: 20060101

REACTIONS (2)
  - CEREBROVASCULAR ACCIDENT [None]
  - DEPRESSION [None]
